FAERS Safety Report 23550156 (Version 1)
Quarter: 2024Q1

REPORT INFORMATION
  Report Type: Spontaneous
  Country: US (occurrence: None)
  Receive Date: 20240220
  Receipt Date: 20240220
  Transmission Date: 20240409
  Serious: Yes (Death)
  Sender: FDA-Public Use
  Company Number: None

PATIENT
  Age: 72 Year
  Sex: Male

DRUGS (22)
  1. AUSTEDO XR [Suspect]
     Active Substance: DEUTETRABENAZINE
     Indication: Tardive dyskinesia
     Dosage: FREQUENCY : DAILY;?
     Route: 048
     Dates: start: 20231207, end: 20240106
  2. BENZONATATE [Concomitant]
     Active Substance: BENZONATATE
  3. alfluzosin er 10mg [Concomitant]
  4. AMLODIPINE [Concomitant]
     Active Substance: AMLODIPINE BESYLATE
  5. ATORVASTATIN [Concomitant]
     Active Substance: ATORVASTATIN
  6. BUDESONIDE [Concomitant]
     Active Substance: BUDESONIDE
  7. clonidine 0.3 [Concomitant]
  8. fluoxetine 20 [Concomitant]
  9. EZETIMIBE [Concomitant]
     Active Substance: EZETIMIBE
  10. furosemide 20 [Concomitant]
  11. hydralazine 25 [Concomitant]
  12. LATANOPROST [Concomitant]
     Active Substance: LATANOPROST
  13. levetiracetam 1000 [Concomitant]
  14. LISINOPRIL [Concomitant]
     Active Substance: LISINOPRIL
  15. METFORMIN HYDROCHLORIDE [Concomitant]
     Active Substance: METFORMIN HYDROCHLORIDE
  16. naltrexone 50 [Concomitant]
  17. olanzapine 10 [Concomitant]
  18. QUETIAPINE [Concomitant]
     Active Substance: QUETIAPINE
  19. rosuvastatin 40 [Concomitant]
  20. tamsulosin 0.4 [Concomitant]
  21. BETIMOL [Concomitant]
     Active Substance: TIMOLOL
  22. TOPIRAMATE [Concomitant]
     Active Substance: TOPIRAMATE

REACTIONS (1)
  - Death [None]

NARRATIVE: CASE EVENT DATE: 20240220
